FAERS Safety Report 17314625 (Version 1)
Quarter: 2020Q1

REPORT INFORMATION
  Report Type: Spontaneous
  Country: US (occurrence: US)
  Receive Date: 20200123
  Receipt Date: 20200123
  Transmission Date: 20200409
  Serious: Yes (Disabling)
  Sender: FDA-Public Use
  Company Number: None

PATIENT
  Age: 32 Year
  Sex: Female
  Weight: 59.85 kg

DRUGS (8)
  1. BOTOX [Suspect]
     Active Substance: ONABOTULINUMTOXINA
     Indication: MIGRAINE
     Route: 058
     Dates: start: 20190806
  2. IMITRIX [Concomitant]
  3. ONDANSETRON [Concomitant]
     Active Substance: ONDANSETRON
  4. EXCEDRIN [Concomitant]
     Active Substance: ACETAMINOPHEN\ASPIRIN\CAFFEINE
  5. ORPHENADRINE [Concomitant]
     Active Substance: ORPHENADRINE
  6. ALBUTEROL. [Concomitant]
     Active Substance: ALBUTEROL
  7. NAPROXEN. [Concomitant]
     Active Substance: NAPROXEN
  8. TENSION [Concomitant]

REACTIONS (1)
  - Dysphemia [None]

NARRATIVE: CASE EVENT DATE: 20190816
